FAERS Safety Report 6903413-9 (Version None)
Quarter: 2010Q3

REPORT INFORMATION
  Report Type: 
  Country: None (occurrence: None)
  Receive Date: 20100803
  Receipt Date: 20080925
  Transmission Date: 20110219
  Serious: No
  Sender: FDA-Public Use
  Company Number: US-PFIZER INC-2008082115

PATIENT
  Sex: Male
  Weight: 113.4 kg

DRUGS (6)
  1. LYRICA [Suspect]
     Indication: FIBROMYALGIA
     Dates: start: 20080901, end: 20080901
  2. TRAZODONE [Concomitant]
  3. CARDIOVASCULAR SYSTEM DRUGS [Concomitant]
  4. DRUG USED IN DIABETES [Concomitant]
  5. ACETYLSALICYLIC ACID SRT [Concomitant]
  6. CYMBALTA [Concomitant]

REACTIONS (5)
  - ERECTILE DYSFUNCTION [None]
  - FEELING ABNORMAL [None]
  - HYPOAESTHESIA [None]
  - HYPOTONIA [None]
  - MENTAL STATUS CHANGES [None]
